FAERS Safety Report 22076187 (Version 1)
Quarter: 2023Q1

REPORT INFORMATION
  Report Type: Spontaneous
  Country: US (occurrence: US)
  Receive Date: 20230309
  Receipt Date: 20230309
  Transmission Date: 20230417
  Serious: No
  Sender: FDA-Public Use
  Company Number: US-LEO Pharma-349820

PATIENT
  Sex: Female

DRUGS (9)
  1. ZYRTEC [Concomitant]
     Active Substance: CETIRIZINE HYDROCHLORIDE
     Indication: Product used for unknown indication
  2. ADBRY [Suspect]
     Active Substance: TRALOKINUMAB-LDRM
     Indication: Dermatitis atopic
     Dosage: DOSAGE: 4 INJECTIONS FOR THE INITIAL DOSE
     Route: 058
     Dates: start: 20230202
  3. ADBRY [Suspect]
     Active Substance: TRALOKINUMAB-LDRM
     Indication: Dermatitis atopic
     Dosage: DOSAGE: 4 INJECTIONS FOR THE INITIAL DOSE
     Route: 058
     Dates: start: 20230202
  4. ADBRY [Suspect]
     Active Substance: TRALOKINUMAB-LDRM
     Indication: Dermatitis atopic
     Dosage: DOSAGE: 4 INJECTIONS FOR THE INITIAL DOSE
     Route: 058
     Dates: start: 20230202
  5. ADBRY [Suspect]
     Active Substance: TRALOKINUMAB-LDRM
     Indication: Dermatitis atopic
     Dosage: DOSAGE: 4 INJECTIONS FOR THE INITIAL DOSE
     Route: 058
     Dates: start: 20230202
  6. ADBRY [Suspect]
     Active Substance: TRALOKINUMAB-LDRM
     Indication: Dermatitis atopic
     Dosage: THEN AT 2 INJECTIONS EVERY OTHER WEEK STARTING ON DAY 15 SUBCUTANEOUSLY
     Route: 058
  7. ADBRY [Suspect]
     Active Substance: TRALOKINUMAB-LDRM
     Indication: Dermatitis atopic
     Dosage: THEN AT 2 INJECTIONS EVERY OTHER WEEK STARTING ON DAY 15 SUBCUTANEOUSLY
     Route: 058
  8. ADBRY [Suspect]
     Active Substance: TRALOKINUMAB-LDRM
     Indication: Dermatitis atopic
     Dosage: THEN AT 2 INJECTIONS EVERY OTHER WEEK STARTING ON DAY 15 SUBCUTANEOUSLY
     Route: 058
  9. ADBRY [Suspect]
     Active Substance: TRALOKINUMAB-LDRM
     Indication: Dermatitis atopic
     Dosage: THEN AT 2 INJECTIONS EVERY OTHER WEEK STARTING ON DAY 15 SUBCUTANEOUSLY
     Route: 058

REACTIONS (2)
  - Dermatitis atopic [Unknown]
  - Sleep disorder [Unknown]
